FAERS Safety Report 9199955 (Version 1)
Quarter: 2013Q1

REPORT INFORMATION
  Report Type: Spontaneous
  Country: US (occurrence: US)
  Receive Date: 20130329
  Receipt Date: 20130329
  Transmission Date: 20140127
  Serious: Yes (Other)
  Sender: FDA-Public Use
  Company Number: US-JNJFOC-20130317455

PATIENT
  Age: 69 Year
  Sex: Male
  Weight: 89.8 kg

DRUGS (4)
  1. NICOTROL INHALER [Suspect]
     Indication: SMOKING CESSATION THERAPY
     Dosage: DOSAGE UNKNOWN
     Route: 055
     Dates: start: 20130321
  2. NICOTROL INHALER [Suspect]
     Indication: SMOKING CESSATION THERAPY
     Dosage: ONE PUFF
     Route: 055
     Dates: start: 20110509, end: 20110609
  3. MAXZIDE [Concomitant]
     Indication: HYPERTENSION
     Route: 065
  4. NORVASC [Concomitant]
     Indication: HYPERTENSION
     Route: 065

REACTIONS (4)
  - Prostatic disorder [Unknown]
  - Dysuria [Unknown]
  - Cystitis [Unknown]
  - Expired drug administered [None]
